FAERS Safety Report 6296187-9 (Version None)
Quarter: 2009Q3

REPORT INFORMATION
  Report Type: 
  Country: None (occurrence: None)
  Receive Date: 20090804
  Receipt Date: 20090723
  Transmission Date: 20100115
  Serious: Yes (Other)
  Sender: FDA-Public Use
  Company Number: FR-JNJFOC-20090707599

PATIENT
  Age: 40 Year
  Sex: Male

DRUGS (8)
  1. RISPERDAL [Suspect]
     Indication: DRUG USE FOR UNKNOWN INDICATION
     Route: 048
  2. URBANYL [Interacting]
     Indication: DRUG USE FOR UNKNOWN INDICATION
     Route: 048
  3. ATARAX [Interacting]
     Indication: DRUG USE FOR UNKNOWN INDICATION
     Route: 048
  4. TRILEPTAL [Interacting]
     Indication: DRUG USE FOR UNKNOWN INDICATION
     Route: 048
  5. AUGMENTIN [Interacting]
     Indication: DRUG USE FOR UNKNOWN INDICATION
     Route: 048
  6. MOPRAL [Interacting]
     Indication: DRUG USE FOR UNKNOWN INDICATION
     Route: 048
  7. LAMICTAL [Concomitant]
     Route: 065
  8. DEPAKENE [Concomitant]
     Route: 065

REACTIONS (8)
  - DRUG INTERACTION [None]
  - HYPERHIDROSIS [None]
  - HYPOTENSION [None]
  - HYPOTHERMIA [None]
  - MEDICATION ERROR [None]
  - POTENTIATING DRUG INTERACTION [None]
  - SOMNOLENCE [None]
  - WRONG DRUG ADMINISTERED [None]
